FAERS Safety Report 21476610 (Version 8)
Quarter: 2024Q4

REPORT INFORMATION
  Report Type: Report from Study
  Country: JP (occurrence: JP)
  Receive Date: 20221019
  Receipt Date: 20241003
  Transmission Date: 20250114
  Serious: Yes (Other)
  Sender: ABBVIE
  Company Number: JP-TAKEDA-2022TJP075513

PATIENT
  Age: 78 Year
  Sex: Male
  Weight: 56 kg

DRUGS (1)
  1. LEUPROLIDE ACETATE [Suspect]
     Active Substance: LEUPROLIDE ACETATE
     Indication: Bulbospinal muscular atrophy congenital
     Dosage: 11.25 MG Q3 MONTHS
     Route: 058
     Dates: start: 20210903, end: 20220311

REACTIONS (2)
  - Diabetes mellitus [Unknown]
  - Abdominal distension [Recovering/Resolving]

NARRATIVE: CASE EVENT DATE: 20220311
